APPROVED DRUG PRODUCT: TRETINOIN
Active Ingredient: TRETINOIN
Strength: 0.05%
Dosage Form/Route: CREAM;TOPICAL
Application: A211644 | Product #001 | TE Code: AB1
Applicant: SUN PHARMA CANADA INC
Approved: Jan 25, 2019 | RLD: No | RS: No | Type: RX